FAERS Safety Report 4607125-6 (Version None)
Quarter: 2005Q1

REPORT INFORMATION
  Report Type: 
  Country: None (occurrence: None)
  Receive Date: 20050302
  Receipt Date: 20050217
  Transmission Date: 20050727
  Serious: Yes (Other)
  Sender: FDA-Public Use
  Company Number: USA050291041

PATIENT
  Age: 39 Year
  Sex: Male

DRUGS (1)
  1. HUMULIN 70/30 [Suspect]

REACTIONS (2)
  - GASTROINTESTINAL CARCINOMA [None]
  - PHARMACEUTICAL PRODUCT COMPLAINT [None]
